FAERS Safety Report 9630993 (Version 1)
Quarter: 2013Q4

REPORT INFORMATION
  Report Type: Spontaneous
  Country: US (occurrence: None)
  Receive Date: 20131016
  Receipt Date: 20131016
  Transmission Date: 20140711
  Serious: Yes (Other)
  Sender: FDA-Public Use
  Company Number: None

PATIENT
  Age: 72 None
  Sex: Female

DRUGS (6)
  1. FOSINOPRIL SODIUM [Suspect]
     Indication: HYPERTENSION
     Route: 048
  2. SYNTHROID [Concomitant]
  3. CALCITROL 0.5 MG [Concomitant]
  4. LISINOPRIL [Concomitant]
  5. CLONIDINE 0.2 MGT [Concomitant]
  6. MULTIVITAMIN [Concomitant]

REACTIONS (4)
  - Fall [None]
  - Calcinosis [None]
  - Blood phosphorus increased [None]
  - Nuclear magnetic resonance imaging brain abnormal [None]
